FAERS Safety Report 11142045 (Version 2)
Quarter: 2015Q4

REPORT INFORMATION
  Report Type: Report from Study
  Country: GB (occurrence: GB)
  Receive Date: 20150527
  Receipt Date: 20151006
  Transmission Date: 20160304
  Serious: Yes (Other)
  Sender: FDA-Public Use
  Company Number: GB-AMGEN-GBRNI2015050134

PATIENT
  Age: 73 Year
  Sex: Female
  Weight: 58 kg

DRUGS (4)
  1. CANDESARTAN [Concomitant]
     Active Substance: CANDESARTAN
     Dosage: 4 MG, 1X/DAY
  2. BENDROFLUAZIDE [Concomitant]
     Active Substance: BENDROFLUMETHIAZIDE
     Dosage: 2.5 MG, 1X/DAY
  3. AMLODIPINE [Concomitant]
     Active Substance: AMLODIPINE BESYLATE
     Dosage: 5 MG, 1X/DAY
  4. ETANERCEPT [Suspect]
     Active Substance: ETANERCEPT
     Indication: PSORIATIC ARTHROPATHY
     Dosage: 25 MG, 2X/WEEK
     Route: 065
     Dates: start: 20040429, end: 20140615

REACTIONS (1)
  - Invasive lobular breast carcinoma [Recovered/Resolved]

NARRATIVE: CASE EVENT DATE: 20131011
